FAERS Safety Report 18401484 (Version 4)
Quarter: 2020Q4

REPORT INFORMATION
  Report Type: Report from Study
  Country: US (occurrence: US)
  Receive Date: 20201019
  Receipt Date: 20201210
  Transmission Date: 20210114
  Serious: Yes (Hospitalization, Other)
  Sender: FDA-Public Use
  Company Number: NVSC2020US272454

PATIENT
  Age: 57 Year
  Sex: Male

DRUGS (1)
  1. ENTRESTO [Suspect]
     Active Substance: SACUBITRIL\VALSARTAN
     Indication: PRODUCT USED FOR UNKNOWN INDICATION
     Dosage: UNK UNK, BID
     Route: 048
     Dates: start: 20200930

REACTIONS (10)
  - Cellulitis [Unknown]
  - Pyrexia [Unknown]
  - Decreased activity [Unknown]
  - Osteomyelitis [Unknown]
  - Gait disturbance [Unknown]
  - Pain in extremity [Unknown]
  - Feeling hot [Unknown]
  - Blister [Unknown]
  - Abscess limb [Unknown]
  - Erythema [Unknown]

NARRATIVE: CASE EVENT DATE: 202010
